FAERS Safety Report 19229958 (Version 2)
Quarter: 2021Q2

REPORT INFORMATION
  Report Type: Spontaneous
  Country: US (occurrence: US)
  Receive Date: 20210507
  Receipt Date: 20210604
  Transmission Date: 20210717
  Serious: Yes (Other)
  Sender: FDA-Public Use
  Company Number: US-BAYER-2021-137051

PATIENT
  Sex: Female

DRUGS (1)
  1. KYLEENA [Suspect]
     Active Substance: LEVONORGESTREL
     Indication: CONTRACEPTION
     Dosage: 17.5  ?G PER DAY,CONTINUOUSLY
     Route: 015
     Dates: start: 20201005

REACTIONS (3)
  - Vulvovaginal dryness [None]
  - Vaginal odour [None]
  - Genital haemorrhage [None]
